FAERS Safety Report 5829549-1 (Version None)
Quarter: 2008Q3

REPORT INFORMATION
  Report Type: 
  Country: None (occurrence: None)
  Receive Date: 20080731
  Receipt Date: 20080725
  Transmission Date: 20090109
  Serious: Yes (Hospitalization)
  Sender: FDA-Public Use
  Company Number: GB-ABBOTT-08P-167-0465507-00

PATIENT
  Sex: Male

DRUGS (5)
  1. KLARICID IV [Suspect]
     Indication: ANTIBIOTIC PROPHYLAXIS
     Route: 042
  2. ROCUAONIUM [Concomitant]
     Indication: DRUG USE FOR UNKNOWN INDICATION
  3. PROPAFOL [Concomitant]
     Indication: DRUG USE FOR UNKNOWN INDICATION
  4. PARACETAMOL [Concomitant]
     Indication: DRUG USE FOR UNKNOWN INDICATION
  5. DICLOFENAC SODIUM [Concomitant]
     Indication: DRUG USE FOR UNKNOWN INDICATION

REACTIONS (4)
  - ANGIOEDEMA [None]
  - BRADYCARDIA [None]
  - DYSARTHRIA [None]
  - PHARYNGEAL OEDEMA [None]
